FAERS Safety Report 9230711 (Version 1)
Quarter: 2013Q2

REPORT INFORMATION
  Report Type: Report from Study
  Country: US (occurrence: US)
  Receive Date: 20130415
  Receipt Date: 20130415
  Transmission Date: 20140414
  Serious: Yes (Other)
  Sender: FDA-Public Use
  Company Number: US-BIOMARINAP-US-2013-100588

PATIENT
  Age: 32 Year
  Sex: Female
  Weight: 74.7 kg

DRUGS (3)
  1. KUVAN [Suspect]
     Indication: PHENYLKETONURIA
     Dosage: 1500 MG, QD
     Route: 048
     Dates: start: 20090508
  2. FISH OIL [Concomitant]
     Indication: PRODUCT USED FOR UNKNOWN INDICATION
     Dosage: 200 MG, QD
  3. VITAMIN D /00107901/ [Concomitant]
     Indication: PRODUCT USED FOR UNKNOWN INDICATION
     Dosage: UNK UNK, QD

REACTIONS (2)
  - Caesarean section [Unknown]
  - Exposure during pregnancy [Recovered/Resolved]
